FAERS Safety Report 12492225 (Version 2)
Quarter: 2016Q3

REPORT INFORMATION
  Report Type: Spontaneous
  Country: US (occurrence: US)
  Receive Date: 20160623
  Receipt Date: 20160712
  Transmission Date: 20161109
  Serious: Yes (Other)
  Sender: FDA-Public Use
  Company Number: US-BEH-2016070339

PATIENT
  Age: 34 Year
  Sex: Male

DRUGS (3)
  1. ALEVE [Concomitant]
     Active Substance: NAPROXEN SODIUM
     Dosage: 220 MG, OD
     Route: 048
  2. NORCO [Concomitant]
     Active Substance: ACETAMINOPHEN\HYDROCODONE BITARTRATE
     Dosage: 5/325, QID
     Route: 048
  3. HIZENTRA [Suspect]
     Active Substance: HUMAN IMMUNOGLOBULIN G
     Indication: CHRONIC INFLAMMATORY DEMYELINATING POLYRADICULONEUROPATHY
     Dosage: UNK UNK, BIW
     Route: 058

REACTIONS (10)
  - Injection site scar [Recovered/Resolved]
  - Wound [Recovered/Resolved]
  - Eschar [Recovered/Resolved]
  - Lymphocytic infiltration [Recovered/Resolved]
  - Injection site ulcer [Recovered/Resolved]
  - Impetigo [Recovered/Resolved]
  - Telangiectasia [Recovered/Resolved]
  - Injection site hypersensitivity [Recovered/Resolved]
  - Injection site erythema [Recovered/Resolved]
  - Granuloma [Recovered/Resolved]
